FAERS Safety Report 18797241 (Version 3)
Quarter: 2021Q4

REPORT INFORMATION
  Report Type: Report from Study
  Country: US (occurrence: US)
  Receive Date: 20210127
  Receipt Date: 20211124
  Transmission Date: 20220303
  Serious: Yes (Other)
  Sender: FDA-Public Use
  Company Number: US-ABBVIE-21K-163-3744569-00

PATIENT
  Age: 58 Year
  Sex: Male

DRUGS (3)
  1. HUMIRA [Suspect]
     Active Substance: ADALIMUMAB
     Indication: Product used for unknown indication
     Route: 058
  2. RINVOQ [Suspect]
     Active Substance: UPADACITINIB
     Indication: Rheumatoid arthritis
     Route: 048
     Dates: start: 202010, end: 202102
  3. COVID-19 VACCINE [Concomitant]
     Indication: COVID-19 immunisation
     Dosage: PFIZER
     Route: 030
     Dates: start: 20210308, end: 20210308

REACTIONS (13)
  - Loss of consciousness [Recovered/Resolved]
  - Syncope [Unknown]
  - Bladder cancer [Not Recovered/Not Resolved]
  - Blindness [Recovering/Resolving]
  - Blood urine present [Recovered/Resolved]
  - Head injury [Unknown]
  - Haemorrhage urinary tract [Recovered/Resolved]
  - Dizziness [Not Recovered/Not Resolved]
  - Nausea [Recovered/Resolved]
  - Fall [Unknown]
  - Face injury [Unknown]
  - Migraine [Recovering/Resolving]
  - Full blood count decreased [Unknown]

NARRATIVE: CASE EVENT DATE: 20210101
